FAERS Safety Report 10301319 (Version 1)
Quarter: 2014Q3

REPORT INFORMATION
  Report Type: Spontaneous
  Country: US (occurrence: None)
  Receive Date: 20140709
  Receipt Date: 20140709
  Transmission Date: 20150326
  Serious: No
  Sender: FDA-Public Use
  Company Number: None

PATIENT
  Age: 78 Year
  Sex: Female
  Weight: 64.86 kg

DRUGS (14)
  1. EVISTA [Concomitant]
     Active Substance: RALOXIFENE HYDROCHLORIDE
  2. LUPIN [Concomitant]
  3. PRILOSEC [Concomitant]
     Active Substance: OMEPRAZOLE MAGNESIUM
  4. VITAMIN D [Concomitant]
     Active Substance: CHOLECALCIFEROL
  5. BABY ASPIRIN [Concomitant]
     Active Substance: ASPIRIN
  6. BENICAR [Concomitant]
     Active Substance: OLMESARTAN MEDOXOMIL
  7. VITAMIN D [Concomitant]
     Active Substance: CHOLECALCIFEROL
  8. X MONTH [Concomitant]
  9. CITRACAL [Concomitant]
     Active Substance: CALCIUM CITRATE
  10. LEVOTHYROXINE [Concomitant]
     Active Substance: LEVOTHYROXINE
  11. SIMVISTATIN [Concomitant]
     Active Substance: SIMVASTATIN
  12. MELOXICAM. [Suspect]
     Active Substance: MELOXICAM
     Indication: RHEUMATOID ARTHRITIS
     Route: 048
     Dates: start: 20130810, end: 20131016
  13. MOBIC (GENERIC [Concomitant]
  14. MAGNESIUM [Concomitant]
     Active Substance: MAGNESIUM

REACTIONS (7)
  - Abdominal discomfort [None]
  - Chest pain [None]
  - Headache [None]
  - Chest discomfort [None]
  - Cardiac flutter [None]
  - Pain in extremity [None]
  - Product quality issue [None]

NARRATIVE: CASE EVENT DATE: 201311
